FAERS Safety Report 15110101 (Version 3)
Quarter: 2018Q3

REPORT INFORMATION
  Report Type: Report from Study
  Country: US (occurrence: US)
  Receive Date: 20180705
  Receipt Date: 20180828
  Transmission Date: 20181010
  Serious: Yes (Hospitalization, Other)
  Sender: FDA-Public Use
  Company Number: US-BAYER-2018-094367

PATIENT
  Age: 60 Year
  Sex: Male

DRUGS (2)
  1. NEXAVAR [Suspect]
     Active Substance: SORAFENIB
     Indication: HEPATIC CANCER
     Dosage: DAILY DOSE 200 MG
     Route: 048
     Dates: start: 2018, end: 2018
  2. NEXAVAR [Suspect]
     Active Substance: SORAFENIB
     Indication: HEPATIC CANCER
     Dosage: 200 MG, BID
     Route: 048
     Dates: start: 20180511, end: 2018

REACTIONS (16)
  - Haemorrhage [None]
  - Blood count abnormal [None]
  - Back pain [Recovered/Resolved]
  - Drug ineffective [None]
  - Diarrhoea [Recovering/Resolving]
  - Drug dose omission [None]
  - Blood pressure increased [Recovering/Resolving]
  - Hepatic cancer [None]
  - Metastatic neoplasm [None]
  - Pre-existing condition improved [None]
  - Fatigue [None]
  - Platelet count decreased [None]
  - Off label use [None]
  - Headache [Recovering/Resolving]
  - Chest pain [Recovered/Resolved]
  - Abdominal pain upper [Not Recovered/Not Resolved]

NARRATIVE: CASE EVENT DATE: 2018
